FAERS Safety Report 15014351 (Version 1)
Quarter: 2018Q2

REPORT INFORMATION
  Report Type: Spontaneous
  Country: ER (occurrence: ER)
  Receive Date: 20180615
  Receipt Date: 20180615
  Transmission Date: 20180711
  Serious: Yes (Other)
  Sender: FDA-Public Use
  Company Number: ER-IPCA LABORATORIES LIMITED-IPC-2018-ER-001256

PATIENT
  Age: 50 Year
  Sex: Female
  Weight: 75 kg

DRUGS (2)
  1. ENALAPRIL TABLET [Concomitant]
     Indication: HYPERTENSION
     Dosage: 20 MG, BID
     Route: 065
  2. HYDROCHLOROTHIAZIDE TABLETS [Suspect]
     Active Substance: HYDROCHLOROTHIAZIDE
     Indication: HYPERTENSION
     Dosage: 20 MG, (5 TIME A DAY)
     Route: 065
     Dates: start: 20130610

REACTIONS (4)
  - Deafness [Not Recovered/Not Resolved]
  - Balance disorder [Not Recovered/Not Resolved]
  - Dizziness [Not Recovered/Not Resolved]
  - Medication error [Unknown]
